FAERS Safety Report 25225461 (Version 1)
Quarter: 2025Q2

REPORT INFORMATION
  Report Type: Other
  Country: BE (occurrence: BE)
  Receive Date: 20250422
  Receipt Date: 20250422
  Transmission Date: 20250716
  Serious: Yes (Death, Hospitalization, Other)
  Sender: COREPHARMA LLC
  Company Number: BE-CorePharma LLC-2175361

PATIENT
  Age: 30 Year
  Sex: Male

DRUGS (5)
  1. SUMATRIPTAN SUCCINATE [Suspect]
     Active Substance: SUMATRIPTAN SUCCINATE
     Indication: Migraine
  2. VALPROIC ACID [Concomitant]
     Active Substance: VALPROIC ACID
  3. CLOTHIAPINE [Concomitant]
     Active Substance: CLOTHIAPINE
  4. LORAZEPAM [Concomitant]
     Active Substance: LORAZEPAM
  5. PAROXETINE [Concomitant]
     Active Substance: PAROXETINE

REACTIONS (7)
  - Arteriospasm coronary [Fatal]
  - Hypoperfusion [Fatal]
  - Ventricular fibrillation [Fatal]
  - Cardiac arrest [Fatal]
  - Multiple organ dysfunction syndrome [Fatal]
  - Distributive shock [Fatal]
  - Cardiogenic shock [Fatal]
